FAERS Safety Report 4290615-6 (Version None)
Quarter: 2004Q1

REPORT INFORMATION
  Report Type: 
  Country: None (occurrence: None)
  Receive Date: 20040209
  Receipt Date: 20040128
  Transmission Date: 20041129
  Serious: Yes (Other)
  Sender: FDA-Public Use
  Company Number: 204457

PATIENT

DRUGS (1)
  1. RITUXAN [Suspect]

REACTIONS (2)
  - LUNG NEOPLASM [None]
  - PULMONARY GRANULOMA [None]
